FAERS Safety Report 4354460-5 (Version None)
Quarter: 2004Q2

REPORT INFORMATION
  Report Type: 
  Country: None (occurrence: None)
  Receive Date: 20040503
  Receipt Date: 20040419
  Transmission Date: 20050107
  Serious: Yes (Death)
  Sender: FDA-Public Use
  Company Number: CERZ-10557

PATIENT
  Sex: Female

DRUGS (5)
  1. CEREZYME [Suspect]
     Indication: GAUCHER'S DISEASE
     Dosage: 60 U/KG Q2WKS IV
     Route: 042
     Dates: start: 19961101
  2. CEREZYME [Suspect]
     Indication: GAUCHER'S DISEASE
     Dosage: 2400 UNTIS Q2WKS IV
     Route: 042
     Dates: end: 20031126
  3. SECTRAL [Concomitant]
  4. KARDEGIC [Concomitant]
  5. DILTIAZEM HCL [Concomitant]

REACTIONS (2)
  - CARDIAC DISORDER [None]
  - PULMONARY HYPERTENSION [None]
